FAERS Safety Report 10340638 (Version 1)
Quarter: 2014Q3

REPORT INFORMATION
  Report Type: Spontaneous
  Country: US (occurrence: US)
  Receive Date: 20140724
  Receipt Date: 20140724
  Transmission Date: 20150326
  Serious: Yes (Hospitalization)
  Sender: FDA-Public Use
  Company Number: US-MYLANLABS-2014S1016867

PATIENT
  Age: 78 Year
  Sex: Male

DRUGS (6)
  1. RIVASTIGMINE [Suspect]
     Active Substance: RIVASTIGMINE
     Dosage: 9.5MG
     Route: 061
  2. WARFARIN [Concomitant]
     Active Substance: WARFARIN
     Dosage: 5 MG/DAY
     Route: 065
  3. TRAZODONE [Concomitant]
     Active Substance: TRAZODONE HYDROCHLORIDE
     Dosage: AT NIGHT
     Route: 065
  4. METOPROLOL [Concomitant]
     Active Substance: METOPROLOL
     Dosage: 25MG DAILY
     Route: 065
  5. SINEMET [Concomitant]
     Active Substance: CARBIDOPA\LEVODOPA
     Dosage: LEVODOPA 100MG/CARBIDOPA 25MG TWICE DAILY
     Route: 065
  6. DONEPEZIL [Suspect]
     Active Substance: DONEPEZIL
     Dosage: 10 MG/DAY
     Route: 065

REACTIONS (4)
  - Encephalopathy [Recovered/Resolved]
  - Toxicity to various agents [Recovered/Resolved]
  - Miosis [Recovered/Resolved]
  - Sinus bradycardia [Recovered/Resolved]
